FAERS Safety Report 18415555 (Version 1)
Quarter: 2020Q4

REPORT INFORMATION
  Report Type: Spontaneous
  Country: US (occurrence: US)
  Receive Date: 20201022
  Receipt Date: 20201022
  Transmission Date: 20210114
  Serious: Yes (Other)
  Sender: FDA-Public Use
  Company Number: US-CURIUM-201500383

PATIENT
  Age: 61 Year
  Sex: Male

DRUGS (1)
  1. THALLOUS CHLORIDE TL 201 [Suspect]
     Active Substance: THALLOUS CHLORIDE TL-201
     Indication: CARDIAC IMAGING PROCEDURE
     Route: 042

REACTIONS (20)
  - Abdominal discomfort [Recovered/Resolved]
  - Dyspnoea [Recovered/Resolved]
  - Pyrexia [Recovered/Resolved]
  - Diarrhoea [Recovered/Resolved]
  - Alopecia [Recovered/Resolved]
  - Decreased appetite [Recovered/Resolved]
  - Asthenia [Recovered/Resolved]
  - Dizziness [Recovered/Resolved]
  - Chest pain [Recovered/Resolved]
  - Electrocardiogram ST segment elevation [Recovered/Resolved]
  - Tremor [Recovered/Resolved]
  - Nosocomial infection [Recovered/Resolved]
  - Radiation injury [Recovered/Resolved]
  - Radiation sickness syndrome [Recovered/Resolved]
  - Malaise [Recovered/Resolved]
  - Discomfort [Recovered/Resolved]
  - Cardiac discomfort [Recovered/Resolved]
  - Flushing [Recovered/Resolved]
  - Candida infection [Recovered/Resolved]
  - Chills [Recovered/Resolved]

NARRATIVE: CASE EVENT DATE: 1995
